FAERS Safety Report 17372684 (Version 1)
Quarter: 2020Q1

REPORT INFORMATION
  Report Type: Report from Study
  Country: BE (occurrence: BE)
  Receive Date: 20200205
  Receipt Date: 20200205
  Transmission Date: 20200409
  Serious: Yes (Other)
  Sender: FDA-Public Use
  Company Number: BE-MYLANLABS-2020M1012858

PATIENT
  Age: 83 Year
  Sex: Female
  Weight: 52.4 kg

DRUGS (11)
  1. PACLITAXEL. [Suspect]
     Active Substance: PACLITAXEL
     Indication: OVARIAN CANCER
     Dosage: 175 MILLIGRAM/SQ. METER, Q3W
     Route: 042
     Dates: start: 20170518
  2. BISOPROLOL FUMARATE. [Concomitant]
     Active Substance: BISOPROLOL FUMARATE
     Dosage: 5 MILLIGRAM
     Route: 065
  3. DAFALGAN FORTE [Concomitant]
     Dosage: UNK
     Route: 065
     Dates: start: 20170727
  4. BEVACIZUMAB. [Suspect]
     Active Substance: BEVACIZUMAB
     Dosage: 700 MILLIGRAM, Q3W
     Route: 042
  5. CARBOPLATIN. [Suspect]
     Active Substance: CARBOPLATIN
     Indication: OVARIAN CANCER
     Dosage: 6 AUC (AREA UNDER CURVE)
     Route: 042
     Dates: start: 20170518
  6. EPREX [Concomitant]
     Active Substance: ERYTHROPOIETIN
     Dosage: 4000 U/ML
     Route: 065
  7. BEVACIZUMAB. [Suspect]
     Active Substance: BEVACIZUMAB
     Indication: OVARIAN CANCER
     Dosage: 780 MILLIGRAM, Q3W
     Route: 042
     Dates: start: 20170518
  8. HYPERLIPEN [Concomitant]
     Dosage: 100 MILLIGRAM
     Route: 065
  9. PANTOMED                           /01263204/ [Concomitant]
     Active Substance: PANTOPRAZOLE SODIUM
     Dosage: UNK
     Route: 065
     Dates: start: 20170524, end: 20171121
  10. LITICAN                            /00690802/ [Concomitant]
     Indication: INFUSION RELATED REACTION
     Dosage: 50 MILLIGRAM
     Route: 065
     Dates: start: 20170524, end: 20170525
  11. ASAFLOW [Concomitant]
     Active Substance: ASPIRIN
     Dosage: 80 MILLIGRAM
     Route: 065

REACTIONS (6)
  - Fatigue [Recovered/Resolved]
  - Peripheral sensory neuropathy [Not Recovered/Not Resolved]
  - Hypertension [Not Recovered/Not Resolved]
  - Periodontal disease [Recovered/Resolved]
  - Ototoxicity [Not Recovered/Not Resolved]
  - Erythema multiforme [Recovered/Resolved]

NARRATIVE: CASE EVENT DATE: 20170828
